FAERS Safety Report 20667202 (Version 1)
Quarter: 2022Q2

REPORT INFORMATION
  Report Type: Spontaneous
  Country: CA (occurrence: CA)
  Receive Date: 20220404
  Receipt Date: 20220404
  Transmission Date: 20220721
  Serious: Yes (Other)
  Sender: FDA-Public Use
  Company Number: CA-JNJFOC-20220363233

PATIENT
  Age: 38 Year
  Sex: Female
  Weight: 88 kg

DRUGS (18)
  1. REMICADE [Suspect]
     Active Substance: INFLIXIMAB
     Indication: Crohn^s disease
     Route: 042
  2. AMLODIPINE [Concomitant]
     Active Substance: AMLODIPINE BESYLATE
  3. BACLOFEN [Concomitant]
     Active Substance: BACLOFEN
  4. CALCIUM CARBONATE [Concomitant]
     Active Substance: CALCIUM CARBONATE
  5. DOCUSATE SODIUM [Concomitant]
     Active Substance: DOCUSATE SODIUM
  6. DULOXETINE HYDROCHLORIDE [Concomitant]
     Active Substance: DULOXETINE HYDROCHLORIDE
  7. FERROUS GLUCONATE [Concomitant]
     Active Substance: FERROUS GLUCONATE
  8. FOLIC ACID [Concomitant]
     Active Substance: FOLIC ACID
  9. HYDROMORPHONE [Concomitant]
     Active Substance: HYDROMORPHONE
  10. INDOMETHACIN [Concomitant]
     Active Substance: INDOMETHACIN
  11. LEVOTHYROXINE SODIUM [Concomitant]
     Active Substance: LEVOTHYROXINE SODIUM
  12. METHADONE [Concomitant]
     Active Substance: METHADONE HYDROCHLORIDE
  13. METHOTREXATE [Concomitant]
     Active Substance: METHOTREXATE
  14. MIRTAZAPINE [Concomitant]
     Active Substance: MIRTAZAPINE
  15. PREGABALIN [Concomitant]
     Active Substance: PREGABALIN
  16. RABEPRAZOLE [Concomitant]
     Active Substance: RABEPRAZOLE
  17. VIT D [VITAMIN D NOS] [Concomitant]
  18. VITAMINS NOS [Concomitant]
     Active Substance: VITAMINS

REACTIONS (2)
  - Illness [Unknown]
  - Weight decreased [Unknown]
